FAERS Safety Report 8274503-6 (Version None)
Quarter: 2012Q2

REPORT INFORMATION
  Report Type: 
  Country: None (occurrence: None)
  Receive Date: 20120411
  Receipt Date: 20120327
  Transmission Date: 20120825
  Serious: Yes (Other)
  Sender: FDA-Public Use
  Company Number: JP-ROCHE-1056536

PATIENT
  Sex: Male

DRUGS (6)
  1. RANIBIZUMAB [Suspect]
     Route: 050
     Dates: start: 20091106
  2. GATIFLOXACIN [Concomitant]
     Dates: start: 20090701
  3. RANIBIZUMAB [Suspect]
     Indication: AGE-RELATED MACULAR DEGENERATION
     Route: 050
     Dates: start: 20090707
  4. VISUDYNE [Concomitant]
     Dates: start: 20090710
  5. VISUDYNE [Concomitant]
     Dates: start: 20091106, end: 20091106
  6. GATIFLOXACIN [Concomitant]
     Dates: end: 20091101

REACTIONS (2)
  - VITREOUS HAEMORRHAGE [None]
  - VISUAL ACUITY REDUCED [None]
